FAERS Safety Report 14264079 (Version 2)
Quarter: 2018Q1

REPORT INFORMATION
  Report Type: Spontaneous
  Country: CA (occurrence: CA)
  Receive Date: 20171208
  Receipt Date: 20180116
  Transmission Date: 20180508
  Serious: Yes (Death)
  Sender: FDA-Public Use
  Company Number: CA-BIOGEN-2017BI00493316

PATIENT
  Sex: Male

DRUGS (1)
  1. SPINRAZA [Suspect]
     Active Substance: NUSINERSEN
     Indication: SPINAL MUSCULAR ATROPHY
     Dosage: 4 LOADING DOSES, FIRST 3 ADMINISTERED 14 DAY INTERVALS, 4TH DOSE ADMINISTERED 30 DAYS AFTER 3RD L...
     Route: 037
     Dates: start: 20170926, end: 20171201

REACTIONS (1)
  - Respiratory failure [Fatal]
